FAERS Safety Report 9644864 (Version 2)
Quarter: 2013Q4

REPORT INFORMATION
  Report Type: Spontaneous
  Country: JP (occurrence: JP)
  Receive Date: 20131025
  Receipt Date: 20131226
  Transmission Date: 20140711
  Serious: Yes (Other)
  Sender: FDA-Public Use
  Company Number: PHHY2013JP118787

PATIENT
  Sex: 0

DRUGS (6)
  1. NEORAL [Suspect]
     Indication: PROPHYLAXIS AGAINST TRANSPLANT REJECTION
     Route: 048
  2. NEORAL [Suspect]
     Indication: RENAL TRANSPLANT
  3. CERTICAN [Suspect]
     Indication: PROPHYLAXIS AGAINST TRANSPLANT REJECTION
     Route: 048
  4. CERTICAN [Suspect]
     Indication: RENAL TRANSPLANT
  5. CELLCEPT [Suspect]
     Indication: PROPHYLAXIS AGAINST TRANSPLANT REJECTION
     Route: 048
  6. CELLCEPT [Suspect]
     Indication: RENAL TRANSPLANT

REACTIONS (2)
  - Bone marrow failure [Unknown]
  - Full blood count decreased [Unknown]
